FAERS Safety Report 15242718 (Version 1)
Quarter: 2018Q3

REPORT INFORMATION
  Report Type: Spontaneous
  Country: US (occurrence: US)
  Receive Date: 20180806
  Receipt Date: 20180806
  Transmission Date: 20181010
  Serious: Yes (Other)
  Sender: FDA-Public Use
  Company Number: US-ABBVIE-18S-163-2440117-00

PATIENT
  Age: 55 Year
  Sex: Female

DRUGS (1)
  1. LUPRON [Suspect]
     Active Substance: LEUPROLIDE ACETATE
     Indication: ENDOMETRIOSIS
     Route: 050

REACTIONS (7)
  - Disability [Not Recovered/Not Resolved]
  - Mental disorder [Not Recovered/Not Resolved]
  - Gait inability [Unknown]
  - Malaise [Unknown]
  - Spinal disorder [Not Recovered/Not Resolved]
  - Suicidal ideation [Unknown]
  - Impaired quality of life [Not Recovered/Not Resolved]

NARRATIVE: CASE EVENT DATE: 20180801
